FAERS Safety Report 5516396-3 (Version None)
Quarter: 2007Q4

REPORT INFORMATION
  Report Type: 
  Country: None (occurrence: None)
  Receive Date: 20071114
  Receipt Date: 20070215
  Transmission Date: 20080405
  Serious: No
  Sender: FDA-Public Use
  Company Number: A0639498A

PATIENT
  Age: 60 Year
  Sex: Male

DRUGS (2)
  1. COMMIT [Suspect]
     Dates: start: 20070209, end: 20070212
  2. NICODERM CQ [Suspect]

REACTIONS (5)
  - ACCIDENTAL EXPOSURE [None]
  - HICCUPS [None]
  - INTENTIONAL DRUG MISUSE [None]
  - NAUSEA [None]
  - NICOTINE DEPENDENCE [None]
